FAERS Safety Report 5694099-2 (Version None)
Quarter: 2008Q2

REPORT INFORMATION
  Report Type: 
  Country: None (occurrence: None)
  Receive Date: 20080402
  Receipt Date: 20080317
  Transmission Date: 20081010
  Serious: Yes (Other)
  Sender: FDA-Public Use
  Company Number: ACO_00423_2008

PATIENT
  Sex: Male
  Weight: 106.5953 kg

DRUGS (3)
  1. ZANAFLEX [Suspect]
     Indication: LUMBAR RADICULOPATHY
     Dosage: (4 MG QD AT BEDTIME ORAL)
     Route: 048
     Dates: start: 20071007, end: 20071009
  2. LYRICA [Suspect]
     Indication: LUMBAR RADICULOPATHY
     Dosage: (75 MG BID)
  3. LYRICA [Suspect]
     Indication: LUMBAR RADICULOPATHY
     Dosage: (150 MG BID)

REACTIONS (2)
  - OFF LABEL USE [None]
  - RASH [None]
